FAERS Safety Report 17991279 (Version 1)
Quarter: 2020Q3

REPORT INFORMATION
  Report Type: Report from Study
  Country: None (occurrence: US)
  Receive Date: 20200708
  Receipt Date: 20200708
  Transmission Date: 20201103
  Serious: Yes (Hospitalization)
  Sender: FDA-Public Use
  Company Number: US-ABBVIE-20K-163-3471163-00

PATIENT
  Age: 77 Year
  Sex: Female

DRUGS (1)
  1. DUOPA [Suspect]
     Active Substance: CARBIDOPA\LEVODOPA
     Indication: PRODUCT USED FOR UNKNOWN INDICATION
     Route: 050
     Dates: start: 20200122

REACTIONS (5)
  - Cellulitis [Unknown]
  - Device issue [Not Recovered/Not Resolved]
  - Illness [Unknown]
  - Tremor [Unknown]
  - Lethargy [Unknown]

NARRATIVE: CASE EVENT DATE: 2020
